FAERS Safety Report 8693832 (Version 5)
Quarter: 2013Q1

REPORT INFORMATION
  Report Type: Spontaneous
  Country: US (occurrence: US)
  Receive Date: 20120731
  Receipt Date: 20130314
  Transmission Date: 20140127
  Serious: Yes (Other)
  Sender: FDA-Public Use
  Company Number: US-TEVA-350562USA

PATIENT
  Sex: Female
  Weight: 63.56 kg

DRUGS (5)
  1. PARAGARD 380A [Suspect]
     Indication: CONTRACEPTION
     Route: 015
     Dates: start: 20091014, end: 20120718
  2. LEXAPRO [Concomitant]
     Indication: DEPRESSION
  3. LEXAPRO [Concomitant]
     Indication: PALPITATIONS
  4. FERROUS SULFATE [Concomitant]
  5. MECLIZINE [Concomitant]

REACTIONS (22)
  - Convulsion [Recovered/Resolved]
  - Tremor [Unknown]
  - Urinary tract infection [Recovering/Resolving]
  - Kidney infection [Recovering/Resolving]
  - Vaginitis bacterial [Recovering/Resolving]
  - Lower urinary tract symptoms [Recovering/Resolving]
  - Blood iron decreased [Not Recovered/Not Resolved]
  - Fatigue [Not Recovered/Not Resolved]
  - Confusional state [Unknown]
  - Inflammation [Unknown]
  - Anxiety [Unknown]
  - Acne [Unknown]
  - Vaginal discharge [Recovering/Resolving]
  - Vaginal odour [Recovering/Resolving]
  - Menorrhagia [Unknown]
  - Back pain [Unknown]
  - Fungal infection [Unknown]
  - Bacterial infection [Unknown]
  - Heart rate increased [Unknown]
  - Dizziness [Unknown]
  - Dyspareunia [Unknown]
  - Abdominal pain [Not Recovered/Not Resolved]
